FAERS Safety Report 6636508-8 (Version None)
Quarter: 2010Q1

REPORT INFORMATION
  Report Type: 
  Country: None (occurrence: None)
  Receive Date: 20100316
  Receipt Date: 20100310
  Transmission Date: 20100710
  Serious: No
  Sender: FDA-Public Use
  Company Number: US-RB-027427-09

PATIENT
  Age: 44 Year
  Sex: Male

DRUGS (2)
  1. SUBOXONE [Suspect]
     Dosage: DOSING DETAILS UNKNOWN
     Route: 060
     Dates: end: 20091201
  2. SUBOXONE [Suspect]
     Route: 060
     Dates: start: 20100309

REACTIONS (8)
  - ASTHENIA [None]
  - BACK PAIN [None]
  - DEPRESSION [None]
  - DIARRHOEA [None]
  - HEADACHE [None]
  - MIGRAINE [None]
  - RASH [None]
  - VOMITING [None]
